FAERS Safety Report 6181291-6 (Version None)
Quarter: 2009Q2

REPORT INFORMATION
  Report Type: 
  Country: None (occurrence: None)
  Receive Date: 20090506
  Receipt Date: 20090504
  Transmission Date: 20091009
  Serious: Yes (Other)
  Sender: FDA-Public Use
  Company Number: DE-BRISTOL-MYERS SQUIBB COMPANY-14593396

PATIENT
  Age: 59 Year
  Sex: Female
  Weight: 60 kg

DRUGS (3)
  1. ARIPIPRAZOLE [Suspect]
     Dosage: FORM = TABS
     Route: 048
  2. IBUPROFEN [Suspect]
     Dosage: IBUPROFEN 600 FORM = TABS
     Route: 048
  3. DOXEPIN HCL [Suspect]
     Dosage: DOXEPINE 75(UNITS NOT SPEC) FROM = TABS 6 DOSAGE FORM = 6 TABS
     Route: 048

REACTIONS (2)
  - COMA [None]
  - MUSCLE SPASMS [None]
